FAERS Safety Report 4915613-8 (Version None)
Quarter: 2006Q1

REPORT INFORMATION
  Report Type: 
  Country: None (occurrence: None)
  Receive Date: 20060217
  Receipt Date: 20060208
  Transmission Date: 20060701
  Serious: Yes (Other)
  Sender: FDA-Public Use
  Company Number: GB-JNJFOC-20060201902

PATIENT

DRUGS (4)
  1. REMICADE [Suspect]
     Indication: CROHN'S DISEASE
     Route: 042
  2. HYDROCORTISONE [Concomitant]
     Indication: ANAPHYLAXIS PROPHYLAXIS
     Route: 065
  3. AZATHIOPRINE [Concomitant]
     Route: 065
  4. PREDNISOLONE [Concomitant]
     Route: 065
     Dates: end: 20050601

REACTIONS (3)
  - ARTHRALGIA [None]
  - JOINT SWELLING [None]
  - TYPE III IMMUNE COMPLEX MEDIATED REACTION [None]
